FAERS Safety Report 12537799 (Version 2)
Quarter: 2016Q3

REPORT INFORMATION
  Report Type: Spontaneous
  Country: US (occurrence: US)
  Receive Date: 20160707
  Receipt Date: 20160804
  Transmission Date: 20161109
  Serious: Yes (Hospitalization)
  Sender: FDA-Public Use
  Company Number: US-SAOL THERAPEUTICS-2016SAO00091

PATIENT
  Age: 55 Year
  Sex: Female

DRUGS (7)
  1. LIORESAL [Suspect]
     Active Substance: BACLOFEN
     Indication: MULTIPLE SCLEROSIS
  2. BACLOFEN. [Concomitant]
     Active Substance: BACLOFEN
     Route: 048
  3. UNSPECIFIED HYPERTENSION (DIURETIC) [Concomitant]
  4. LIORESAL [Suspect]
     Active Substance: BACLOFEN
     Indication: MUSCLE SPASTICITY
     Dosage: 260 ?G, \DAY
     Route: 037
  5. DILAUDID [Suspect]
     Active Substance: HYDROMORPHONE HYDROCHLORIDE
     Route: 042
  6. MORPHINE [Suspect]
     Active Substance: MORPHINE
     Dosage: 0.8 UNK, UNK
     Route: 037
  7. PLAVIX [Concomitant]
     Active Substance: CLOPIDOGREL BISULFATE
     Route: 048

REACTIONS (14)
  - Muscle spasticity [Unknown]
  - Drug withdrawal syndrome [Recovered/Resolved]
  - Ventricular extrasystoles [Unknown]
  - Pain [Unknown]
  - Gait disturbance [Unknown]
  - Nausea [Unknown]
  - Peripheral coldness [Unknown]
  - Hypoaesthesia [Unknown]
  - Therapy non-responder [Unknown]
  - Dizziness [Unknown]
  - Vomiting [Unknown]
  - Blood pressure increased [Unknown]
  - Nasal congestion [Unknown]
  - Chest discomfort [Unknown]

NARRATIVE: CASE EVENT DATE: 2016
